FAERS Safety Report 12282327 (Version 1)
Quarter: 2016Q2

REPORT INFORMATION
  Report Type: Report from Study
  Country: IT (occurrence: IT)
  Receive Date: 20160419
  Receipt Date: 20160419
  Transmission Date: 20160815
  Serious: Yes (Life-Threatening)
  Sender: FDA-Public Use
  Company Number: IT-B.I. PHARMACEUTICALS,INC./RIDGEFIELD-2013-IT-00289IT

PATIENT
  Age: 76 Year
  Sex: Female
  Weight: 49 kg

DRUGS (6)
  1. METOCLOPRAMIDE. [Concomitant]
     Active Substance: METOCLOPRAMIDE
     Indication: PRODUCT USED FOR UNKNOWN INDICATION
     Route: 048
     Dates: start: 20121201, end: 20130426
  2. AFATINIB [Suspect]
     Active Substance: AFATINIB
     Indication: NON-SMALL CELL LUNG CANCER
     Dosage: 40 MG
     Route: 048
     Dates: start: 20130226, end: 20130326
  3. METHYLPREDNISOLONE. [Concomitant]
     Active Substance: METHYLPREDNISOLONE
     Indication: PRODUCT USED FOR UNKNOWN INDICATION
     Route: 048
     Dates: start: 20121201, end: 20130426
  4. FENTANYL MYLAN [Concomitant]
     Active Substance: FENTANYL
     Indication: PRODUCT USED FOR UNKNOWN INDICATION
     Dosage: STRENGTH-12 MCG/H: ROUTE: CUTANEOUS
     Route: 050
     Dates: start: 20121201, end: 20130426
  5. RANITIDINE. [Concomitant]
     Active Substance: RANITIDINE
     Indication: PRODUCT USED FOR UNKNOWN INDICATION
     Dosage: CAPSULE FOR ORAL MUCOSA
     Route: 048
     Dates: start: 20121201, end: 20130426
  6. ENOXAPARIN SODIUM. [Concomitant]
     Active Substance: ENOXAPARIN SODIUM
     Indication: PRODUCT USED FOR UNKNOWN INDICATION
     Dosage: FORMULATION: INJECTABLE SOLUTION, ROUTE: SUBDERMAL
     Route: 050
     Dates: start: 20121201, end: 20130426

REACTIONS (2)
  - Duodenal ulcer perforation [Unknown]
  - Peritonitis [Unknown]

NARRATIVE: CASE EVENT DATE: 20130326
